FAERS Safety Report 7764667-2 (Version None)
Quarter: 2011Q3

REPORT INFORMATION
  Report Type: 
  Country: None (occurrence: None)
  Receive Date: 20110919
  Receipt Date: 20110909
  Transmission Date: 20111222
  Serious: Yes (Hospitalization)
  Sender: FDA-Public Use
  Company Number: 2011MA013404

PATIENT
  Age: 1 Year

DRUGS (1)
  1. FEVERALL [Suspect]
     Dosage: 25 MG; RTL
     Route: 054
     Dates: start: 20110401

REACTIONS (3)
  - DRUG DISPENSING ERROR [None]
  - HEPATIC ENZYME INCREASED [None]
  - INCORRECT DOSE ADMINISTERED [None]
